FAERS Safety Report 14127715 (Version 2)
Quarter: 2017Q4

REPORT INFORMATION
  Report Type: Spontaneous
  Country: US (occurrence: US)
  Receive Date: 20171026
  Receipt Date: 20171031
  Transmission Date: 20180321
  Serious: Yes (Other)
  Sender: FDA-Public Use
  Company Number: US-BRISTOL-MYERS SQUIBB COMPANY-BMS-2017-094462

PATIENT
  Age: 74 Year
  Sex: Female

DRUGS (1)
  1. ELIQUIS [Suspect]
     Active Substance: APIXABAN
     Indication: DEEP VEIN THROMBOSIS
     Dosage: UNK UNK, BID
     Route: 048
     Dates: start: 2017

REACTIONS (6)
  - Blood urine present [Unknown]
  - Haemorrhage [Unknown]
  - Chromaturia [Unknown]
  - Eye haemorrhage [Unknown]
  - Urinary tract infection [Unknown]
  - Eye pain [Unknown]

NARRATIVE: CASE EVENT DATE: 2017
